FAERS Safety Report 25189064 (Version 1)
Quarter: 2025Q2

REPORT INFORMATION
  Report Type: Report from Study
  Country: US (occurrence: US)
  Receive Date: 20250411
  Receipt Date: 20250411
  Transmission Date: 20250717
  Serious: Yes (Other)
  Sender: pharmaAND
  Company Number: US-Pharmaand-2025000336

PATIENT
  Age: 79 Year
  Sex: Female

DRUGS (1)
  1. RUBRACA [Suspect]
     Active Substance: RUCAPARIB CAMSYLATE
     Indication: Ovarian cancer
     Dosage: 200 MG, 2 TABLETS TWICE DAILY
     Route: 048
     Dates: start: 20221110

REACTIONS (10)
  - Colon cancer [Unknown]
  - Neuropathy peripheral [Unknown]
  - Constipation [Unknown]
  - Hypoaesthesia [Unknown]
  - Discomfort [Unknown]
  - Peripheral coldness [Unknown]
  - Asthenia [Unknown]
  - Nausea [Unknown]
  - Vomiting [Unknown]
  - Vertigo [Unknown]
